FAERS Safety Report 5428291-9 (Version None)
Quarter: 2007Q3

REPORT INFORMATION
  Report Type: 
  Country: None (occurrence: None)
  Receive Date: 20070731
  Receipt Date: 20070424
  Transmission Date: 20080115
  Serious: No
  Sender: FDA-Public Use
  Company Number: US200704005630

PATIENT
  Sex: Female

DRUGS (2)
  1. BYETTA [Suspect]
  2. EXENATIDE PEN, DISPOSABLE DEVICE (EXENATIDE PEN) [Concomitant]

REACTIONS (3)
  - DIZZINESS [None]
  - FALL [None]
  - UPPER LIMB FRACTURE [None]
